FAERS Safety Report 15822155 (Version 1)
Quarter: 2018Q4

REPORT INFORMATION
  Report Type: Spontaneous
  Country: US (occurrence: US)
  Receive Date: 20181217
  Receipt Date: 20181217
  Transmission Date: 20190205
  Serious: No
  Sender: FDA-Public Use
  Company Number: None

PATIENT
  Sex: Female

DRUGS (1)
  1. CAPECITABINE 500MG HIKMA [Suspect]
     Active Substance: CAPECITABINE
     Route: 048
     Dates: start: 20181018

REACTIONS (5)
  - Pain in extremity [None]
  - Abdominal tenderness [None]
  - Feeling cold [None]
  - Paraesthesia [None]
  - Malaise [None]
